FAERS Safety Report 26056080 (Version 1)
Quarter: 2025Q4

REPORT INFORMATION
  Report Type: Spontaneous
  Country: US (occurrence: US)
  Receive Date: 20251118
  Receipt Date: 20251118
  Transmission Date: 20260118
  Serious: Yes (Hospitalization, Other)
  Sender: ACCORD
  Company Number: US-Accord-511629

PATIENT
  Age: 75 Year
  Sex: Female
  Weight: 56.44 kg

DRUGS (4)
  1. CARBOPLATIN [Suspect]
     Active Substance: CARBOPLATIN
     Indication: Small cell lung cancer
     Dosage: 495 MILLIGRAM, Q3W,  IV DRIP
     Route: 042
     Dates: start: 20250722, end: 20251008
  2. ETOPOSIDE [Suspect]
     Active Substance: ETOPOSIDE
     Indication: Small cell lung cancer
     Dosage: 167MG, ONCE DAILY, THREE DAYS EACH CYCLE, Q3W; IV DRIP
     Route: 042
     Dates: start: 20250722, end: 20251010
  3. LEVOTHYROXINE [Concomitant]
     Active Substance: LEVOTHYROXINE
     Indication: Hypothyroidism
     Dosage: 88MCG, QD
     Route: 048
     Dates: start: 1984
  4. FILGRASTIM [Concomitant]
     Active Substance: FILGRASTIM
     Indication: Prophylaxis
     Dosage: 300 MG, QD, 5 DAYS/3 WEEKS
     Route: 030
     Dates: start: 20250829

REACTIONS (2)
  - Colitis [Not Recovered/Not Resolved]
  - Neutropenia [Recovered/Resolved]

NARRATIVE: CASE EVENT DATE: 20251016
